FAERS Safety Report 8481239-5 (Version None)
Quarter: 2012Q3

REPORT INFORMATION
  Report Type: 
  Country: None (occurrence: None)
  Receive Date: 20120702
  Receipt Date: 20120618
  Transmission Date: 20120928
  Serious: Yes (Other)
  Sender: FDA-Public Use
  Company Number: IN-RANBAXY-2012R1-57424

PATIENT
  Age: 43 Year
  Sex: Female

DRUGS (3)
  1. CLOBAZAM [Suspect]
     Indication: EPILEPSY
     Dosage: 10 MG, BID
     Route: 065
  2. ZONISAMIDE [Suspect]
     Indication: EPILEPSY
     Dosage: 100 MG, QD
     Route: 065
  3. OXCARBAZEPINE [Suspect]
     Indication: EPILEPSY
     Dosage: 600 MG, BID
     Route: 065

REACTIONS (3)
  - BROWN TUMOUR [None]
  - FEMORAL NECK FRACTURE [None]
  - HYPERPARATHYROIDISM SECONDARY [None]
